FAERS Safety Report 7357363-7 (Version None)
Quarter: 2011Q1

REPORT INFORMATION
  Report Type: 
  Country: None (occurrence: None)
  Receive Date: 20110307
  Receipt Date: 20110222
  Transmission Date: 20110831
  Serious: Yes (Hospitalization)
  Sender: FDA-Public Use
  Company Number: DE-004627

PATIENT
  Age: 83 Year
  Sex: Male

DRUGS (2)
  1. FIRMAGON [Suspect]
     Indication: PRODUCT USED FOR UNKNOWN INDICATION
     Dosage: 240 MG 1X SUBCUTANEOUS, 80 MG 1X/MONTH
     Route: 058
     Dates: start: 20100420, end: 20100420
  2. FIRMAGON [Suspect]
     Indication: PRODUCT USED FOR UNKNOWN INDICATION
     Dosage: 240 MG 1X SUBCUTANEOUS, 80 MG 1X/MONTH
     Route: 058
     Dates: start: 20100420, end: 20110125

REACTIONS (2)
  - CHILLS [None]
  - VOMITING [None]
